FAERS Safety Report 7122207-5 (Version None)
Quarter: 2010Q4

REPORT INFORMATION
  Report Type: 
  Country: None (occurrence: None)
  Receive Date: 20101119
  Receipt Date: 20101119
  Transmission Date: 20110411
  Serious: No
  Sender: FDA-Public Use
  Company Number: None

PATIENT
  Sex: Male
  Weight: 85.9 kg

DRUGS (3)
  1. VICODIN [Suspect]
     Indication: NEUROPATHY PERIPHERAL
     Dosage: VICODIN (GENERIC ) 1 TAB Q8H BY MOUTH
     Route: 048
     Dates: start: 20100801, end: 20100816
  2. KALETRA [Concomitant]
  3. TRUVADA REGIMEN [Concomitant]

REACTIONS (2)
  - DRUG INEFFECTIVE [None]
  - PRODUCT SUBSTITUTION ISSUE [None]
